FAERS Safety Report 10669344 (Version 2)
Quarter: 2014Q4

REPORT INFORMATION
  Report Type: Report from Study
  Country: US (occurrence: US)
  Receive Date: 20141222
  Receipt Date: 20141223
  Transmission Date: 20150529
  Serious: Yes (Death)
  Sender: FDA-Public Use
  Company Number: PHEH2014US023388

PATIENT

DRUGS (1)
  1. GLEEVEC [Suspect]
     Active Substance: IMATINIB MESYLATE
     Indication: GASTRIC CANCER
     Dosage: 300 MG, QD
     Route: 048

REACTIONS (3)
  - Off label use [Unknown]
  - Gastric ulcer [Fatal]
  - Gastric cancer [Fatal]
